FAERS Safety Report 12709763 (Version 1)
Quarter: 2016Q3

REPORT INFORMATION
  Report Type: Spontaneous
  Country: CA (occurrence: CA)
  Receive Date: 20160902
  Receipt Date: 20160902
  Transmission Date: 20161109
  Serious: Yes (Other)
  Sender: FDA-Public Use
  Company Number: CA-ORION CORPORATION ORION PHARMA-TREX2016-1561

PATIENT
  Age: 61 Year
  Sex: Male

DRUGS (7)
  1. METHOTREXATE (TRADE NAME UNKNOWN) [Suspect]
     Active Substance: METHOTREXATE
     Route: 048
  2. REMICADE [Suspect]
     Active Substance: INFLIXIMAB
     Route: 042
  3. MOBICOX [Concomitant]
     Active Substance: MELOXICAM
     Route: 065
  4. ENBREL [Suspect]
     Active Substance: ETANERCEPT
     Indication: ANKYLOSING SPONDYLITIS
     Route: 058
  5. MOTRIN [Concomitant]
     Active Substance: IBUPROFEN
     Route: 065
  6. METHOTREXATE. [Suspect]
     Active Substance: METHOTREXATE
     Route: 058
  7. VIOXX [Suspect]
     Active Substance: ROFECOXIB
     Route: 065

REACTIONS (5)
  - Hypertension [Recovered/Resolved]
  - Nervous system disorder [Recovered/Resolved]
  - Rheumatoid arthritis [Recovered/Resolved]
  - Drug ineffective [Recovered/Resolved]
  - Iritis [Recovered/Resolved]
